FAERS Safety Report 5493026-0 (Version None)
Quarter: 2007Q4

REPORT INFORMATION
  Report Type: 
  Country: None (occurrence: None)
  Receive Date: 20071018
  Receipt Date: 20071003
  Transmission Date: 20080405
  Serious: Yes (Other)
  Sender: FDA-Public Use
  Company Number: 2007S1009814

PATIENT
  Age: 84 Year
  Sex: Female

DRUGS (4)
  1. DOXAZOSIN MESYLATE [Suspect]
     Indication: HYPERTENSION
     Dosage: 4 MG;
     Dates: start: 20070622, end: 20070815
  2. ALDOMET /00637902/ (METHYLDOPATE HYDROCHLORIDE) [Concomitant]
  3. BUMETANIDE [Concomitant]
  4. LOSARTAN POTASSIUM [Concomitant]

REACTIONS (4)
  - CHEST DISCOMFORT [None]
  - PARAESTHESIA [None]
  - PARALYSIS [None]
  - TENDERNESS [None]
